FAERS Safety Report 6882763-9 (Version None)
Quarter: 2010Q3

REPORT INFORMATION
  Report Type: 
  Country: None (occurrence: None)
  Receive Date: 20100729
  Receipt Date: 20100722
  Transmission Date: 20110219
  Serious: Yes (Other)
  Sender: FDA-Public Use
  Company Number: GB-PFIZER INC-2010092914

PATIENT
  Age: 17 Year
  Sex: Male

DRUGS (1)
  1. HYDROCORTISONE SODIUM SUCCINATE [Suspect]
     Dosage: UNK

REACTIONS (2)
  - ADDISON'S DISEASE [None]
  - OSTEOPOROTIC FRACTURE [None]
